FAERS Safety Report 7007166-8 (Version None)
Quarter: 2010Q3

REPORT INFORMATION
  Report Type: 
  Country: None (occurrence: None)
  Receive Date: 20100922
  Receipt Date: 20100915
  Transmission Date: 20110219
  Serious: Yes (Other)
  Sender: FDA-Public Use
  Company Number: DE-TEVA-248838ISR

PATIENT
  Sex: Female

DRUGS (1)
  1. IBUPROFEN [Suspect]
     Indication: PAIN
     Route: 048

REACTIONS (5)
  - CONFUSIONAL STATE [None]
  - DEPENDENCE [None]
  - DRUG ABUSE [None]
  - MIOSIS [None]
  - STARING [None]
